FAERS Safety Report 5268988-7 (Version None)
Quarter: 2007Q1

REPORT INFORMATION
  Report Type: 
  Country: None (occurrence: None)
  Receive Date: 20070319
  Receipt Date: 20070309
  Transmission Date: 20070707
  Serious: Yes (Hospitalization)
  Sender: FDA-Public Use
  Company Number: DE-JNJFOC-20070105985

PATIENT
  Sex: Female

DRUGS (2)
  1. DIPIPERON [Suspect]
     Indication: SCHIZOPHRENIA, PARANOID TYPE
     Route: 065
  2. RISPERDAL CONSTA [Interacting]
     Indication: SCHIZOPHRENIA, PARANOID TYPE
     Route: 030

REACTIONS (3)
  - AKATHISIA [None]
  - DRUG INTERACTION [None]
  - PARKINSONISM [None]
